FAERS Safety Report 4864172-7 (Version None)
Quarter: 2005Q4

REPORT INFORMATION
  Report Type: 
  Country: None (occurrence: None)
  Receive Date: 20051219
  Receipt Date: 20051209
  Transmission Date: 20060501
  Serious: Yes (Hospitalization)
  Sender: FDA-Public Use
  Company Number: HQWYE984413DEC05

PATIENT
  Age: 73 Year
  Sex: Female
  Weight: 86.26 kg

DRUGS (6)
  1. PROTONIX [Suspect]
     Dosage: 40 MG 1 X PER 1 DAY, ORAL
     Route: 048
     Dates: start: 20050826, end: 20050902
  2. THYROID TAB [Concomitant]
  3. MEPHYTON (PHYTOMENADIONE) [Concomitant]
  4. PREDNISONE [Concomitant]
  5. HYZAAR [Concomitant]
  6. UNSPECIFIED OPHTHALMIC PREPARATION (UNSPECIFIED OPHTHALMIC PREPARATION [Concomitant]

REACTIONS (1)
  - COELIAC DISEASE [None]
